FAERS Safety Report 7257673-8 (Version None)
Quarter: 2011Q1

REPORT INFORMATION
  Report Type: 
  Country: None (occurrence: None)
  Receive Date: 20110129
  Receipt Date: 20100607
  Transmission Date: 20110831
  Serious: No
  Sender: FDA-Public Use
  Company Number: US-ABBOTT-10P-163-0644135-00

PATIENT
  Sex: Female
  Weight: 99.88 kg

DRUGS (4)
  1. HUMIRA [Suspect]
     Indication: RHEUMATOID ARTHRITIS
     Dates: start: 20100301
  2. MOBIC [Concomitant]
     Indication: RHEUMATOID ARTHRITIS
  3. METFORMIN [Concomitant]
     Indication: DIABETES MELLITUS
  4. METOTREXATE [Concomitant]
     Indication: RHEUMATOID ARTHRITIS

REACTIONS (3)
  - WRONG TECHNIQUE IN DRUG USAGE PROCESS [None]
  - INCORRECT DOSE ADMINISTERED [None]
  - INJECTION SITE PAIN [None]
